FAERS Safety Report 5018487-2 (Version None)
Quarter: 2006Q2

REPORT INFORMATION
  Report Type: 
  Country: None (occurrence: None)
  Receive Date: 20060530
  Receipt Date: 20050420
  Transmission Date: 20061013
  Serious: Yes (Hospitalization)
  Sender: FDA-Public Use
  Company Number: 2005062204

PATIENT
  Age: 63 Year
  Sex: Female

DRUGS (3)
  1. PREGABALIN (PREGABALIN) [Suspect]
     Indication: CONVULSION
     Dosage: 75 MG (75, 1 IN 1 D), ORAL
     Route: 048
  2. DICLOFENAC POTASSIUM [Concomitant]
  3. ARTHROTEC [Concomitant]

REACTIONS (4)
  - AMNESIA [None]
  - RASH [None]
  - TACHYCARDIA [None]
  - TREMOR [None]
